FAERS Safety Report 7559330-7 (Version None)
Quarter: 2011Q2

REPORT INFORMATION
  Report Type: 
  Country: None (occurrence: None)
  Receive Date: 20110621
  Receipt Date: 20110616
  Transmission Date: 20111010
  Serious: Yes (Life-Threatening, Hospitalization, Other)
  Sender: FDA-Public Use
  Company Number: US-ASTRAZENECA-2011SE36907

PATIENT
  Age: 72 Year
  Sex: Female

DRUGS (2)
  1. CRESTOR [Suspect]
     Route: 048
  2. NEXIUM [Suspect]
     Route: 048

REACTIONS (9)
  - MALAISE [None]
  - APPARENT DEATH [None]
  - HEAD INJURY [None]
  - HOSPITALISATION [None]
  - FALL [None]
  - GAIT DISTURBANCE [None]
  - CARDIAC DISORDER [None]
  - FRACTURED COCCYX [None]
  - BACK INJURY [None]
